FAERS Safety Report 4572272-4 (Version None)
Quarter: 2005Q1

REPORT INFORMATION
  Report Type: 
  Country: None (occurrence: None)
  Receive Date: 20050203
  Receipt Date: 20050119
  Transmission Date: 20050727
  Serious: Yes (Life-Threatening)
  Sender: FDA-Public Use
  Company Number: 2005AP00291

PATIENT
  Age: 77 Year
  Sex: Female
  Weight: 45.4 kg

DRUGS (13)
  1. IRESSA [Suspect]
     Indication: LUNG ADENOCARCINOMA
     Dosage: 250 MG DAILY PO
     Route: 048
     Dates: start: 20041221, end: 20041229
  2. IRESSA [Suspect]
     Indication: NON-SMALL CELL LUNG CANCER
     Dosage: 250 MG DAILY PO
     Route: 048
     Dates: start: 20041221, end: 20041229
  3. TENORMIN [Concomitant]
  4. SELBEX [Concomitant]
  5. GANATON [Concomitant]
  6. NOVAMIN [Concomitant]
  7. ENSURE [Concomitant]
  8. TWINPAL [Concomitant]
  9. NOVOLIN [Concomitant]
  10. ASTOMIN [Concomitant]
  11. DIBETON S [Concomitant]
  12. ACECOL [Concomitant]
  13. CARDENALIN [Concomitant]

REACTIONS (19)
  - ASPARTATE AMINOTRANSFERASE INCREASED [None]
  - BLOOD CREATINE PHOSPHOKINASE INCREASED [None]
  - BLOOD LACTATE DEHYDROGENASE INCREASED [None]
  - CARDIAC FAILURE [None]
  - CHEST DISCOMFORT [None]
  - DECREASED APPETITE [None]
  - DISSEMINATED INTRAVASCULAR COAGULATION [None]
  - GENERAL PHYSICAL HEALTH DETERIORATION [None]
  - HYPOXIA [None]
  - INFECTION [None]
  - LYMPHANGIOSIS CARCINOMATOSA [None]
  - MALAISE [None]
  - MYOCARDIAL ISCHAEMIA [None]
  - NAUSEA [None]
  - OXYGEN SATURATION DECREASED [None]
  - PLATELET COUNT DECREASED [None]
  - PULMONARY CONGESTION [None]
  - PYREXIA [None]
  - TACHYCARDIA [None]
